FAERS Safety Report 25226030 (Version 1)
Quarter: 2025Q2

REPORT INFORMATION
  Report Type: Spontaneous
  Country: US (occurrence: US)
  Receive Date: 20250422
  Receipt Date: 20250422
  Transmission Date: 20250717
  Serious: No
  Sender: BAUSCH AND LOMB
  Company Number: US-BAUSCHBL-2025BNL006623

PATIENT
  Sex: Female

DRUGS (1)
  1. ZYLET [Suspect]
     Active Substance: LOTEPREDNOL ETABONATE\TOBRAMYCIN
     Indication: Product used for unknown indication
     Route: 047
     Dates: start: 2025

REACTIONS (4)
  - Ocular hyperaemia [Recovered/Resolved]
  - Foreign body sensation in eyes [Recovered/Resolved]
  - Vision blurred [Recovered/Resolved]
  - Reaction to preservatives [Unknown]
